FAERS Safety Report 7405370-8 (Version None)
Quarter: 2011Q2

REPORT INFORMATION
  Report Type: 
  Country: None (occurrence: None)
  Receive Date: 20110411
  Receipt Date: 20101021
  Transmission Date: 20111010
  Serious: Yes (Life-Threatening, Hospitalization, Other)
  Sender: FDA-Public Use
  Company Number: US-BAYER-201019459NA

PATIENT
  Age: 37 Year
  Sex: Female
  Weight: 82 kg

DRUGS (4)
  1. YASMIN [Suspect]
     Indication: CONTRACEPTION
     Dosage: UNK UNK, QD
     Route: 048
     Dates: start: 20050801, end: 20060227
  2. LEXAPRO [Concomitant]
  3. IBUPROFEN [Concomitant]
  4. YASMIN [Suspect]
     Indication: UTERINE HAEMORRHAGE

REACTIONS (5)
  - CHEST PAIN [None]
  - PULMONARY EMBOLISM [None]
  - DYSPNOEA [None]
  - MYOCARDIAL INFARCTION [None]
  - THROMBOSIS [None]
